FAERS Safety Report 25662480 (Version 2)
Quarter: 2025Q3

REPORT INFORMATION
  Report Type: Report from Study
  Country: US (occurrence: US)
  Receive Date: 20250810
  Receipt Date: 20250812
  Transmission Date: 20251020
  Serious: Yes (Other)
  Sender: ABBVIE
  Company Number: US-ABBVIE-6271681

PATIENT
  Age: 71 Year
  Sex: Female

DRUGS (4)
  1. IMBRUVICA [Suspect]
     Active Substance: IBRUTINIB
     Indication: Waldenstrom^s macroglobulinaemia
     Route: 048
     Dates: start: 20250422
  2. IMBRUVICA [Suspect]
     Active Substance: IBRUTINIB
     Indication: Waldenstrom^s macroglobulinaemia
     Route: 048
  3. FAMOTIDINE [Concomitant]
     Active Substance: FAMOTIDINE
     Indication: Product used for unknown indication
  4. OMEPRAZOLE [Concomitant]
     Active Substance: OMEPRAZOLE
     Indication: Product used for unknown indication

REACTIONS (14)
  - Pharyngeal haemorrhage [Unknown]
  - Epistaxis [Unknown]
  - Fatigue [Unknown]
  - Dry mouth [Unknown]
  - Nasal dryness [Unknown]
  - Dizziness [Unknown]
  - Muscle spasms [Recovering/Resolving]
  - Restless legs syndrome [Unknown]
  - Sleep disorder [Unknown]
  - Caffeine allergy [Unknown]
  - Arthralgia [Unknown]
  - Sneezing [Unknown]
  - Asthenia [Unknown]
  - Nausea [Unknown]

NARRATIVE: CASE EVENT DATE: 20250101
